FAERS Safety Report 6338782-4 (Version None)
Quarter: 2009Q3

REPORT INFORMATION
  Report Type: 
  Country: None (occurrence: None)
  Receive Date: 20090903
  Receipt Date: 20090825
  Transmission Date: 20100115
  Serious: Yes (Life-Threatening, Disabling)
  Sender: FDA-Public Use
  Company Number: DE-JNJFOC-20090807818

PATIENT
  Sex: Female
  Weight: 58.5 kg

DRUGS (5)
  1. REMICADE [Suspect]
     Indication: CROHN'S DISEASE
     Route: 042
  2. AZATHIOPRINE [Suspect]
     Indication: CROHN'S DISEASE
  3. PREDNISOLONE [Concomitant]
     Indication: CROHN'S DISEASE
     Dosage: 0-30 MG ONCE DAILY
  4. ENTOCORT EC [Concomitant]
     Indication: CROHN'S DISEASE
     Route: 054
  5. MESALAMINE [Concomitant]
     Indication: CROHN'S DISEASE
     Route: 054

REACTIONS (1)
  - LYMPHOPROLIFERATIVE DISORDER [None]
